FAERS Safety Report 7519830-2 (Version None)
Quarter: 2011Q2

REPORT INFORMATION
  Report Type: 
  Country: None (occurrence: None)
  Receive Date: 20110602
  Receipt Date: 20110525
  Transmission Date: 20111010
  Serious: Yes (Hospitalization)
  Sender: FDA-Public Use
  Company Number: JP-ALEXION-A201100745

PATIENT
  Age: 58 Year
  Sex: Male

DRUGS (4)
  1. PREDNISOLONE [Suspect]
     Dosage: 20 MG QD
     Dates: start: 19970301
  2. SOLIRIS [Suspect]
     Dosage: 900 MG Q2W
     Route: 042
     Dates: start: 20100903
  3. SOLIRIS [Suspect]
     Indication: PAROXYSMAL NOCTURNAL HAEMOGLOBINURIA
     Dosage: 600 MG QW
     Route: 042
     Dates: start: 20100806
  4. BLOOD TRANSGUSIONS [Concomitant]
     Dosage: 28 UNITS
     Dates: start: 20100101

REACTIONS (3)
  - SEPSIS [None]
  - PANCYTOPENIA [None]
  - IMMUNODEFICIENCY [None]
